FAERS Safety Report 5165239-9 (Version None)
Quarter: 2006Q4

REPORT INFORMATION
  Report Type: 
  Country: None (occurrence: None)
  Receive Date: 20061124
  Receipt Date: 20061113
  Transmission Date: 20070319
  Serious: Yes (Other)
  Sender: FDA-Public Use
  Company Number: 2006141706

PATIENT
  Age: 62 Year
  Sex: Female

DRUGS (3)
  1. FELDENE [Suspect]
     Dosage: 20 MG (20 MG, 1 IN 1 D), INTRAMUSCULAR
     Route: 030
     Dates: start: 20061029, end: 20061029
  2. MUSCORIL (THIOCOLCHICOSIDE) [Suspect]
     Dosage: 4 MG (4 MG, 1 IN 1 D), INTRAMUSCULAR
     Route: 030
     Dates: start: 20061029, end: 20061029
  3. GENERAL NUTRIENTS (GENERAL NUTRIENTS) [Concomitant]

REACTIONS (8)
  - AGITATION [None]
  - AMNESIA [None]
  - HYPOTENSION [None]
  - ILL-DEFINED DISORDER [None]
  - LOSS OF CONSCIOUSNESS [None]
  - MALAISE [None]
  - RASH [None]
  - TRISMUS [None]
